FAERS Safety Report 4607373-5 (Version None)
Quarter: 2005Q1

REPORT INFORMATION
  Report Type: 
  Country: None (occurrence: None)
  Receive Date: 20050309
  Receipt Date: 20050301
  Transmission Date: 20050727
  Serious: Yes (Hospitalization)
  Sender: FDA-Public Use
  Company Number: TCI2005A01412

PATIENT
  Age: 74 Year
  Sex: Female

DRUGS (7)
  1. ACTOS [Suspect]
     Indication: DIABETES MELLITUS
     Dosage: 15 MG (15 MG, 1 D), PER ORAL
     Route: 048
     Dates: start: 20000311, end: 20050228
  2. BAYASPIRIN 9ACETYLSALICYLIC ACID0 [Concomitant]
  3. CAPTORIL -R (CAPTOPRIL) [Concomitant]
  4. AMLODIPINE BESYLATE [Concomitant]
  5. BASEN (VOGLIBOSE0 [Concomitant]
  6. GLYBURIDE [Concomitant]
  7. CONSTAN (ALPRAZOLAM) [Concomitant]

REACTIONS (2)
  - ATRIOVENTRICULAR BLOCK COMPLETE [None]
  - BRADYCARDIA [None]
